FAERS Safety Report 5810386-9 (Version None)
Quarter: 2008Q3

REPORT INFORMATION
  Report Type: 
  Country: None (occurrence: None)
  Receive Date: 20080709
  Receipt Date: 20080703
  Transmission Date: 20090109
  Serious: Yes (Death)
  Sender: FDA-Public Use
  Company Number: 2008SP013362

PATIENT
  Age: 29 Year
  Sex: Female

DRUGS (1)
  1. POSACONAZOLE [Suspect]
     Indication: MUCORMYCOSIS

REACTIONS (2)
  - ACUTE MYELOID LEUKAEMIA [None]
  - STEM CELL TRANSPLANT [None]
